FAERS Safety Report 9304296 (Version 1)
Quarter: 2013Q2

REPORT INFORMATION
  Report Type: Spontaneous
  Country: US (occurrence: US)
  Receive Date: 20130522
  Receipt Date: 20130522
  Transmission Date: 20140414
  Serious: Yes (Other)
  Sender: FDA-Public Use
  Company Number: US-PFIZER INC-2013155286

PATIENT
  Age: 40 Year
  Sex: Female

DRUGS (4)
  1. ETHINYL ESTRADIOL/NORGESTREL [Suspect]
     Indication: ORAL CONTRACEPTION
     Dosage: 0.3/ 0.03MG
     Route: 048
     Dates: start: 20090831
  2. ETHINYL ESTRADIOL/NORGESTREL [Suspect]
     Dosage: 0.3/ 0.03MG
     Route: 048
     Dates: start: 20110517
  3. ETHINYL ESTRADIOL/NORGESTREL [Suspect]
     Dosage: 0.3/ 0.03MG
     Route: 048
     Dates: start: 20110714
  4. LO/OVRAL-28 [Suspect]
     Indication: CONTRACEPTION
     Dosage: 0.3/0.03MG, ONE TABLET DAILY
     Route: 048
     Dates: start: 20111111, end: 201111

REACTIONS (3)
  - Product quality issue [Unknown]
  - Drug ineffective [Unknown]
  - Unintended pregnancy [Unknown]
